FAERS Safety Report 11336134 (Version 2)
Quarter: 2015Q3

REPORT INFORMATION
  Report Type: Report from Study
  Country: PH (occurrence: PH)
  Receive Date: 20150804
  Receipt Date: 20150914
  Transmission Date: 20151125
  Serious: Yes (Death, Hospitalization)
  Sender: FDA-Public Use
  Company Number: PHHY2015PH093306

PATIENT
  Sex: Male

DRUGS (3)
  1. TASIGNA [Suspect]
     Active Substance: NILOTINIB
     Dosage: 2 DF (A TOTAL OF 300 MG), QD
     Route: 048
     Dates: start: 201506
  2. TASIGNA [Suspect]
     Active Substance: NILOTINIB
     Dosage: 1 DF (A TOTAL OF 150 MG), QD
     Route: 048
     Dates: start: 201506, end: 201506
  3. TASIGNA [Suspect]
     Active Substance: NILOTINIB
     Indication: CHRONIC MYELOID LEUKAEMIA
     Dosage: 600 MG, QD
     Route: 048
     Dates: start: 20150429, end: 201505

REACTIONS (5)
  - Platelet count decreased [Unknown]
  - Asthenia [Unknown]
  - Sepsis [Fatal]
  - Loss of consciousness [Unknown]
  - Balance disorder [Unknown]
